FAERS Safety Report 14333538 (Version 5)
Quarter: 2019Q1

REPORT INFORMATION
  Report Type: Report from Study
  Country: None (occurrence: NO)
  Receive Date: 20171228
  Receipt Date: 20190314
  Transmission Date: 20190417
  Serious: Yes (Death, Hospitalization)
  Sender: FDA-Public Use
  Company Number: NO-ABBVIE-17P-122-2205799-00

PATIENT
  Age: 64 Year
  Sex: Male

DRUGS (9)
  1. COBIMETINIB. [Suspect]
     Active Substance: COBIMETINIB
     Route: 048
     Dates: start: 20171222, end: 20171224
  2. SOMAC (PANTOPRAZOLE SODIUM) [Concomitant]
     Indication: DYSPEPSIA
     Route: 048
  3. MINIFOM(SIMETHICONE) [Concomitant]
     Indication: FLATULENCE
     Route: 048
     Dates: start: 20170126, end: 201711
  4. ATACAND [Concomitant]
     Active Substance: CANDESARTAN CILEXETIL
     Indication: HYPERTENSION
     Route: 048
  5. ZOFRAN (ONDANSETRON) [Concomitant]
     Indication: NAUSEA
     Route: 048
     Dates: start: 20171204, end: 20171231
  6. VENETOCLAX. [Suspect]
     Active Substance: VENETOCLAX
     Indication: PLASMA CELL MYELOMA
     Dosage: MOST RECENT DOSE (800 MG) ON 08 DEC 2017
     Route: 048
     Dates: start: 20171204
  7. VITAMINE B12 ROCHE(CYANOCOBALAMIN) [Concomitant]
     Indication: ANAEMIA
     Route: 030
     Dates: end: 20171231
  8. MAXALT (RIZATRIPTAN BENZOATE) [Concomitant]
     Active Substance: RIZATRIPTAN BENZOATE
     Indication: MIGRAINE
     Route: 048
  9. COBIMETINIB. [Suspect]
     Active Substance: COBIMETINIB
     Indication: PLASMA CELL MYELOMA
     Dosage: MOST RECENT DOSE (40 MG) ON 08 DEC 2017
     Route: 048
     Dates: start: 20171204

REACTIONS (1)
  - Pneumonia [Fatal]

NARRATIVE: CASE EVENT DATE: 20171217
